FAERS Safety Report 6401098-1 (Version None)
Quarter: 2009Q4

REPORT INFORMATION
  Report Type: 
  Country: None (occurrence: None)
  Receive Date: 20091015
  Receipt Date: 20091003
  Transmission Date: 20100525
  Serious: Yes (Hospitalization)
  Sender: FDA-Public Use
  Company Number: US-JNJFOC-20091003307

PATIENT
  Sex: Male
  Weight: 16.33 kg

DRUGS (3)
  1. TYLENOL [Suspect]
     Route: 065
  2. TYLENOL [Suspect]
     Indication: PYREXIA
     Route: 065
  3. MOTRIN [Concomitant]
     Indication: PYREXIA

REACTIONS (5)
  - CHAPPED LIPS [None]
  - CONVULSION [None]
  - PYREXIA [None]
  - RHINORRHOEA [None]
  - TRANSMISSION OF AN INFECTIOUS AGENT VIA A MEDICINAL PRODUCT [None]
